FAERS Safety Report 7334176-3 (Version None)
Quarter: 2011Q1

REPORT INFORMATION
  Report Type: 
  Country: None (occurrence: None)
  Receive Date: 20110307
  Receipt Date: 20100618
  Transmission Date: 20110831
  Serious: Yes (Hospitalization)
  Sender: FDA-Public Use
  Company Number: US-BAYER-201019666NA

PATIENT
  Sex: Female
  Weight: 61.224 kg

DRUGS (26)
  1. NEXIUM [Concomitant]
     Indication: GASTRITIS BACTERIAL
     Dosage: 40 MG, BID
  2. REGLAN [Concomitant]
     Indication: GASTRITIS BACTERIAL
  3. HYDROCODONE BITARTRATE AND ACETAMINOPHEN [Concomitant]
  4. UNCODEABLE ^UNCLASSIFIABLE^ [Concomitant]
     Dosage: 100 MG, UNK
     Route: 048
  5. YASMIN [Suspect]
     Indication: PREMENSTRUAL SYNDROME
  6. TOPAMAX [Concomitant]
     Dosage: 50 MG, BID
  7. CEPHALEXIN [Concomitant]
     Dosage: 250 MG, UNK
     Route: 048
  8. UNCODEABLE ^UNCLASSIFIABLE^ [Concomitant]
     Dosage: 4 MG, UNK
     Route: 048
  9. ULTRAM [Concomitant]
     Dosage: 50 MG, PRN
  10. GAS RELIEF [Concomitant]
     Dosage: 180 MG, BID
  11. YAZ [Suspect]
     Indication: ACNE
  12. MAXALT [Concomitant]
     Dosage: 5 MG, UNK
  13. LEVSIN/SL [Concomitant]
     Dosage: 0.125 MG, PRN
     Route: 060
  14. PROMETHAZINE [Concomitant]
     Dosage: 25 MG, UNK
     Route: 048
  15. FLUCONAZOLE [Concomitant]
     Dosage: 150 MG, UNK
     Route: 048
  16. UNCODEABLE ^UNCLASSIFIABLE^ [Concomitant]
     Dosage: 0.125 MG, PRN
  17. YASMIN [Suspect]
     Indication: ORAL CONTRACEPTION
     Route: 048
     Dates: start: 20070101, end: 20080101
  18. LACTAID [Concomitant]
     Dosage: UNK UNK, PRN
     Route: 048
  19. YAZ [Suspect]
     Indication: ORAL CONTRACEPTION
     Route: 048
     Dates: start: 20070101, end: 20080101
  20. YAZ [Suspect]
     Indication: PREMENSTRUAL SYNDROME
  21. ZOVIA 1/35E-21 [Concomitant]
  22. ROBINUL [Concomitant]
     Dosage: 2 MG, QD
  23. YASMIN [Suspect]
     Indication: ACNE
  24. MACROBID [Concomitant]
     Dosage: 100 MG, QD
  25. DETROL LA [Concomitant]
     Dosage: 4 MG, QD
  26. PHENAZOPYRIDINE HCL TAB [Concomitant]
     Dosage: 200 MG, UNK
     Route: 048

REACTIONS (10)
  - HYPERHIDROSIS [None]
  - NAUSEA [None]
  - MENTAL DISORDER [None]
  - CHOLECYSTITIS CHRONIC [None]
  - VAGINAL HAEMORRHAGE [None]
  - MOOD SWINGS [None]
  - VOMITING [None]
  - BILIARY TRACT DISORDER [None]
  - ABDOMINAL PAIN UPPER [None]
  - CHEST PAIN [None]
